FAERS Safety Report 6641225-4 (Version None)
Quarter: 2010Q1

REPORT INFORMATION
  Report Type: 
  Country: None (occurrence: None)
  Receive Date: 20100318
  Receipt Date: 20100308
  Transmission Date: 20100710
  Serious: Yes (Death)
  Sender: FDA-Public Use
  Company Number: BE-PFIZER INC-2010014304

PATIENT
  Age: 37 Year
  Sex: Male
  Weight: 80 kg

DRUGS (2)
  1. CHAMPIX [Suspect]
     Indication: SMOKING CESSATION THERAPY
     Dosage: 1 MG, 2X/DAY
     Route: 048
     Dates: start: 20090917, end: 20091107
  2. CHAMPIX [Suspect]
     Dosage: 200 MG, SINGLE
     Dates: start: 20091108, end: 20091108

REACTIONS (2)
  - COMPLETED SUICIDE [None]
  - OVERDOSE [None]
